FAERS Safety Report 8782868 (Version 2)
Quarter: 2013Q4

REPORT INFORMATION
  Report Type: Report from Study
  Country: SE (occurrence: SE)
  Receive Date: 20120913
  Receipt Date: 20131007
  Transmission Date: 20140711
  Serious: Yes (Hospitalization)
  Sender: FDA-Public Use
  Company Number: SE-GLAXOSMITHKLINE-Z0013770B

PATIENT
  Age: 67 Year
  Sex: Male
  Weight: 100 kg

DRUGS (1)
  1. PAZOPANIB [Suspect]
     Indication: RENAL CELL CARCINOMA
     Dosage: 800MG PER DAY
     Route: 048
     Dates: start: 20090727

REACTIONS (1)
  - Hyperkalaemia [Recovered/Resolved]
